FAERS Safety Report 12323672 (Version 2)
Quarter: 2016Q2

REPORT INFORMATION
  Report Type: Spontaneous
  Country: US (occurrence: US)
  Receive Date: 20160502
  Receipt Date: 20160517
  Transmission Date: 20160815
  Serious: No
  Sender: FDA-Public Use
  Company Number: US-LNK INTERNATIONAL, INC.-1051291

PATIENT
  Age: 3 Year
  Sex: Male

DRUGS (1)
  1. CHILDRENS PAIN AND FEVER [Suspect]
     Active Substance: ACETAMINOPHEN

REACTIONS (1)
  - Accidental exposure to product by child [None]
